FAERS Safety Report 8533089-9 (Version None)
Quarter: 2012Q3

REPORT INFORMATION
  Report Type: 
  Country: None (occurrence: None)
  Receive Date: 20120711
  Receipt Date: 20120702
  Transmission Date: 20120928
  Serious: Yes (Hospitalization)
  Sender: FDA-Public Use
  Company Number: AUR-APL-2012-02888

PATIENT
  Age: 65 Year
  Sex: Female

DRUGS (12)
  1. DOSULEPIN (DOSULEPIN) [Concomitant]
  2. NITRAZEPAM [Concomitant]
  3. ALBUTEROL SULFATE [Concomitant]
  4. SIMVASTATIN [Concomitant]
  5. QVAR [Concomitant]
  6. PHENOXYMETHYLPENICILLIN [Concomitant]
  7. GABAPENTIN [Suspect]
     Indication: PAIN
     Dosage: 1800 MG (600 MG, 3 IN 1 D), ORAL
     Route: 048
     Dates: start: 20120315
  8. ACETAMINOPHEN W/ CODEINE [Concomitant]
  9. FUROSEMIDE [Concomitant]
  10. ISOSORBIDE MONONITRATE [Concomitant]
  11. MORPHINE SULFATE [Concomitant]
  12. PERINDOPRIL ERBUMINE [Concomitant]

REACTIONS (5)
  - CONFUSIONAL STATE [None]
  - DIZZINESS [None]
  - GAIT DISTURBANCE [None]
  - DIPLOPIA [None]
  - DYSARTHRIA [None]
